FAERS Safety Report 6130157-6 (Version None)
Quarter: 2009Q1

REPORT INFORMATION
  Report Type: 
  Country: None (occurrence: None)
  Receive Date: 20090324
  Receipt Date: 20090309
  Transmission Date: 20090719
  Serious: Yes (Hospitalization)
  Sender: FDA-Public Use
  Company Number: ES-PFIZER INC-2009181740

PATIENT

DRUGS (5)
  1. BLINDED *PLACEBO [Suspect]
     Indication: COLORECTAL CANCER METASTATIC
     Dosage: 37.5 MG, EVERY 42 DAYS, TDD 37.5 MG
     Dates: start: 20080620
  2. BLINDED SUNITINIB MALATE [Suspect]
     Indication: COLORECTAL CANCER METASTATIC
     Dosage: 37.5 MG, EVERY 42 DAYS, TDD 37.5 MG
     Dates: start: 20080620
  3. IRINOTECAN HCL [Suspect]
     Indication: COLORECTAL CANCER METASTATIC
     Dosage: FREQUENCY: CYCLIC, EVERY 15 DAYS;
     Route: 042
     Dates: start: 20080620
  4. FOLINIC ACID [Suspect]
     Indication: COLORECTAL CANCER METASTATIC
     Dosage: FREQUENCY: CYCLIC, EVERY 15 DAYS;
     Route: 042
     Dates: start: 20080620
  5. FLUOROURACIL [Suspect]
     Indication: COLORECTAL CANCER METASTATIC
     Dosage: FREQUENCY: CYCLIC, EVERY 15 DAYS;
     Route: 042
     Dates: start: 20080620

REACTIONS (3)
  - ATAXIA [None]
  - DIZZINESS [None]
  - PUPILS UNEQUAL [None]
